FAERS Safety Report 4580086-4 (Version None)
Quarter: 2005Q1

REPORT INFORMATION
  Report Type: 
  Country: None (occurrence: None)
  Receive Date: 20050210
  Receipt Date: 20050201
  Transmission Date: 20050727
  Serious: No
  Sender: FDA-Public Use
  Company Number: 212052

PATIENT
  Age: 55 Year
  Sex: Male
  Weight: 86.6 kg

DRUGS (3)
  1. AVASTIN [Suspect]
     Dosage: 450 MG, Q2W, INTRAVENOUS
     Route: 042
     Dates: start: 20040929, end: 20050110
  2. GLUCOTROL [Concomitant]
  3. ATENOLOL [Concomitant]

REACTIONS (4)
  - CHEST PAIN [None]
  - DYSPNOEA [None]
  - HYPOAESTHESIA [None]
  - PARAESTHESIA [None]
